FAERS Safety Report 6636592-1 (Version None)
Quarter: 2010Q1

REPORT INFORMATION
  Report Type: 
  Country: None (occurrence: None)
  Receive Date: 20100316
  Receipt Date: 20100308
  Transmission Date: 20100710
  Serious: Yes (Death)
  Sender: FDA-Public Use
  Company Number: JP-MERCK-1003USA01684

PATIENT
  Age: 82 Year
  Sex: Male

DRUGS (8)
  1. JANUVIA [Suspect]
     Indication: DIABETES MELLITUS
     Route: 048
     Dates: start: 20100115
  2. HARNAL [Concomitant]
     Route: 048
     Dates: start: 20100115, end: 20100302
  3. TAKEPRON [Concomitant]
     Route: 048
     Dates: start: 20100115, end: 20100302
  4. SINGULAIR [Concomitant]
     Route: 048
     Dates: start: 20100115, end: 20100302
  5. MUCOSOLVAN L [Concomitant]
     Route: 048
     Dates: start: 20100115, end: 20100302
  6. LENDORMIN [Concomitant]
     Route: 048
     Dates: start: 20100115, end: 20100302
  7. MYSLEE [Concomitant]
     Route: 048
     Dates: start: 20100115, end: 20100302
  8. HOKUNALIN [Concomitant]
     Route: 061
     Dates: start: 20100115, end: 20100302

REACTIONS (1)
  - PNEUMONIA [None]
